FAERS Safety Report 17663714 (Version 1)
Quarter: 2020Q2

REPORT INFORMATION
  Report Type: Spontaneous
  Country: US (occurrence: US)
  Receive Date: 20200414
  Receipt Date: 20200414
  Transmission Date: 20200713
  Serious: No
  Sender: FDA-Public Use
  Company Number: US-GLAXOSMITHKLINE-US2020062902

PATIENT
  Sex: Female

DRUGS (2)
  1. ANTIBIOTICS (BRAND NAMES NOT KNOWN) [Concomitant]
     Active Substance: UNSPECIFIED INGREDIENT
     Indication: PRODUCT USED FOR UNKNOWN INDICATION
     Dosage: UNK
     Route: 065
  2. BENLYSTA [Suspect]
     Active Substance: BELIMUMAB
     Indication: PRODUCT USED FOR UNKNOWN INDICATION
     Dosage: UNK UNK, WE
     Route: 065
     Dates: end: 201909

REACTIONS (4)
  - Rash [Unknown]
  - Gingivitis [Recovered/Resolved]
  - Acne [Recovered/Resolved]
  - Pain [Unknown]
